FAERS Safety Report 6157739-X (Version None)
Quarter: 2009Q2

REPORT INFORMATION
  Report Type: 
  Country: None (occurrence: None)
  Receive Date: 20090414
  Receipt Date: 20090330
  Transmission Date: 20091009
  Serious: Yes (Hospitalization)
  Sender: FDA-Public Use
  Company Number: 2009000728

PATIENT
  Age: 60 Year
  Sex: Female
  Weight: 56.8 kg

DRUGS (9)
  1. ERLOTINIB (ERLOTINIB) (TABLET) (ERLOTINIB) [Suspect]
     Indication: PANCREATIC CARCINOMA
     Dosage: (100 MG, QD), ORAL
     Route: 048
     Dates: start: 20081120, end: 20081201
  2. GEMCITABINE [Suspect]
     Indication: PANCREATIC CARCINOMA
     Dosage: (1000 MG/M2, QW), INTRAVENOUS)
     Route: 042
     Dates: start: 20081120
  3. XELODA [Suspect]
     Indication: PANCREATIC CARCINOMA
     Dosage: (1250 MG/M2, BID)
     Dates: start: 20081120, end: 20081218
  4. XANAX [Concomitant]
  5. PAXIL [Concomitant]
  6. LISINOPRIL [Concomitant]
  7. VICODIN [Concomitant]
  8. PANCREASE (PANCRELIPASE) [Concomitant]
  9. ACETAMINOPHEN [Concomitant]

REACTIONS (9)
  - BLOOD CULTURE POSITIVE [None]
  - DEHYDRATION [None]
  - ESCHERICHIA INFECTION [None]
  - KLEBSIELLA INFECTION [None]
  - MUCOSAL INFLAMMATION [None]
  - PLATELET COUNT DECREASED [None]
  - SMALL INTESTINAL OBSTRUCTION [None]
  - VOMITING [None]
  - WHITE BLOOD CELL COUNT DECREASED [None]
